FAERS Safety Report 21558633 (Version 2)
Quarter: 2022Q4

REPORT INFORMATION
  Report Type: Spontaneous
  Country: US (occurrence: US)
  Receive Date: 20221107
  Receipt Date: 20221107
  Transmission Date: 20230112
  Serious: No
  Sender: FDA-Public Use
  Company Number: US-HBP-2022US027840

PATIENT
  Sex: Male

DRUGS (1)
  1. VALCHLOR [Suspect]
     Active Substance: MECHLORETHAMINE
     Indication: Product used for unknown indication
     Dosage: THIN FILM, TO AFFECTED SKIN ONCE DAILY
     Route: 061

REACTIONS (2)
  - Skin discolouration [Unknown]
  - Skin hyperpigmentation [Unknown]
